FAERS Safety Report 6634201-9 (Version None)
Quarter: 2010Q1

REPORT INFORMATION
  Report Type: 
  Country: None (occurrence: None)
  Receive Date: 20100315
  Receipt Date: 20090415
  Transmission Date: 20100710
  Serious: Yes (Hospitalization, Other)
  Sender: FDA-Public Use
  Company Number: PHHY2009TW60823

PATIENT

DRUGS (1)
  1. GLEEVEC [Suspect]
     Dosage: 800 MG

REACTIONS (13)
  - ABDOMINAL PAIN [None]
  - ARTHRITIS [None]
  - DIAPHRAGMATIC DISORDER [None]
  - DRY SKIN [None]
  - DYSPNOEA [None]
  - HERNIA [None]
  - MUSCULOSKELETAL STIFFNESS [None]
  - NAUSEA [None]
  - NEOPLASM [None]
  - PALPITATIONS [None]
  - PNEUMONIA [None]
  - PYREXIA [None]
  - VOMITING [None]
